FAERS Safety Report 15621878 (Version 1)
Quarter: 2018Q4

REPORT INFORMATION
  Report Type: Report from Study
  Country: FR (occurrence: FR)
  Receive Date: 20181115
  Receipt Date: 20181115
  Transmission Date: 20190205
  Serious: Yes (Other)
  Sender: FDA-Public Use
  Company Number: FR-SAMSUNG BIOEPIS-SB-2018-14656

PATIENT
  Age: 14 Year
  Sex: Female

DRUGS (1)
  1. FLIXABI [Suspect]
     Active Substance: INFLIXIMAB
     Indication: PRODUCT USED FOR UNKNOWN INDICATION
     Dosage: UNKNOWN
     Route: 065
     Dates: end: 20180830

REACTIONS (5)
  - Oedema [Unknown]
  - Bone pain [Recovered/Resolved]
  - Spinal pain [Unknown]
  - Asthenia [Unknown]
  - Bone lesion [Unknown]

NARRATIVE: CASE EVENT DATE: 20180515
